FAERS Safety Report 5716685-3 (Version None)
Quarter: 2008Q2

REPORT INFORMATION
  Report Type: 
  Country: None (occurrence: None)
  Receive Date: 20080424
  Receipt Date: 20070507
  Transmission Date: 20081010
  Serious: Yes (Hospitalization, Other)
  Sender: FDA-Public Use
  Company Number: US-BAYER-200711067BWH

PATIENT
  Age: 41 Year
  Sex: Male

DRUGS (4)
  1. LEVITRA [Suspect]
     Indication: DRUG USE FOR UNKNOWN INDICATION
     Route: 048
  2. FLOMAX [Concomitant]
  3. PREVACID [Concomitant]
  4. NIASPAN [Concomitant]

REACTIONS (1)
  - PALPITATIONS [None]
